FAERS Safety Report 13367014 (Version 1)
Quarter: 2017Q1

REPORT INFORMATION
  Report Type: Spontaneous
  Country: US (occurrence: US)
  Receive Date: 20170323
  Receipt Date: 20170323
  Transmission Date: 20170429
  Serious: Yes (Hospitalization)
  Sender: FDA-Public Use
  Company Number: None

PATIENT
  Age: 60 Year
  Sex: Male
  Weight: 79.9 kg

DRUGS (1)
  1. OMNIPAQUE [Suspect]
     Active Substance: IOHEXOL
     Indication: COMPUTERISED TOMOGRAM
     Dosage: ?          OTHER FREQUENCY:ONCE;?
     Dates: start: 20170224, end: 20170224

REACTIONS (6)
  - Unresponsive to stimuli [None]
  - Restlessness [None]
  - Agitation [None]
  - Contrast media reaction [None]
  - Abnormal behaviour [None]
  - Tremor [None]

NARRATIVE: CASE EVENT DATE: 20170224
